FAERS Safety Report 6689402-0 (Version None)
Quarter: 2010Q2

REPORT INFORMATION
  Report Type: 
  Country: None (occurrence: None)
  Receive Date: 20100419
  Receipt Date: 20100419
  Transmission Date: 20101027
  Serious: Yes (Life-Threatening)
  Sender: FDA-Public Use
  Company Number: None

PATIENT
  Age: 59 Year
  Sex: Female

DRUGS (7)
  1. LEVAQUIN [Suspect]
     Dosage: 500 MILLIGRAMS
     Dates: end: 20100408
  2. PREDNISONE [Concomitant]
  3. XANAX [Concomitant]
  4. HYZAAR [Concomitant]
  5. SYNTHROID [Concomitant]
  6. EFFEXOR XR [Concomitant]
  7. AMBIEN CR [Concomitant]

REACTIONS (9)
  - ASTHENIA [None]
  - DRUG HYPERSENSITIVITY [None]
  - DRUG INEFFECTIVE [None]
  - DYSPNOEA [None]
  - FEELING ABNORMAL [None]
  - GRAND MAL CONVULSION [None]
  - MIGRAINE [None]
  - PHARYNGEAL OEDEMA [None]
  - URINARY INCONTINENCE [None]
